FAERS Safety Report 6639383-0 (Version None)
Quarter: 2010Q1

REPORT INFORMATION
  Report Type: 
  Country: None (occurrence: None)
  Receive Date: 20100318
  Receipt Date: 20100309
  Transmission Date: 20100710
  Serious: Yes (Other)
  Sender: FDA-Public Use
  Company Number: US-BIOGENIDEC-2010BI008482

PATIENT
  Age: 27 Year
  Sex: Female

DRUGS (2)
  1. TYSABRI [Suspect]
     Indication: MULTIPLE SCLEROSIS
     Route: 042
     Dates: start: 20060715, end: 20071031
  2. TYSABRI [Suspect]
     Route: 042
     Dates: start: 20081022, end: 20090325

REACTIONS (2)
  - ABORTION SPONTANEOUS [None]
  - PREGNANCY [None]
